FAERS Safety Report 9672102 (Version 1)
Quarter: 2013Q4

REPORT INFORMATION
  Report Type: Spontaneous
  Country: US (occurrence: US)
  Receive Date: 20131106
  Receipt Date: 20131106
  Transmission Date: 20140711
  Serious: Yes (Other)
  Sender: FDA-Public Use
  Company Number: US-JNJFOC-20131018473

PATIENT
  Age: 23 Year
  Sex: Female

DRUGS (14)
  1. USTEKINUMAB [Suspect]
     Indication: PSORIATIC ARTHROPATHY
     Route: 058
  2. USTEKINUMAB [Suspect]
     Indication: PSORIATIC ARTHROPATHY
     Route: 058
  3. USTEKINUMAB [Suspect]
     Indication: PSORIATIC ARTHROPATHY
     Route: 058
  4. USTEKINUMAB [Suspect]
     Indication: PSORIASIS
     Route: 058
  5. USTEKINUMAB [Suspect]
     Indication: PSORIASIS
     Route: 058
  6. USTEKINUMAB [Suspect]
     Indication: PSORIASIS
     Route: 058
  7. METHOTREXATE [Suspect]
     Indication: PSORIASIS
     Route: 065
  8. METHOTREXATE [Suspect]
     Indication: PSORIATIC ARTHROPATHY
     Route: 065
  9. ETANERCEPT [Suspect]
     Indication: PSORIATIC ARTHROPATHY
     Route: 065
  10. ETANERCEPT [Suspect]
     Indication: PSORIASIS
     Route: 065
  11. ADALIMUMAB [Suspect]
     Indication: PSORIATIC ARTHROPATHY
     Route: 065
  12. ADALIMUMAB [Suspect]
     Indication: PSORIATIC ARTHROPATHY
     Route: 065
  13. ADALIMUMAB [Suspect]
     Indication: PSORIASIS
     Route: 065
  14. ADALIMUMAB [Suspect]
     Indication: PSORIASIS
     Route: 065

REACTIONS (4)
  - Autoimmune haemolytic anaemia [Recovered/Resolved]
  - Furuncle [Recovered/Resolved]
  - Psoriatic arthropathy [Not Recovered/Not Resolved]
  - Drug ineffective [Unknown]
